FAERS Safety Report 16800686 (Version 1)
Quarter: 2019Q3

REPORT INFORMATION
  Report Type: Spontaneous
  Country: US (occurrence: US)
  Receive Date: 20190723
  Receipt Date: 20190723
  Transmission Date: 20191005
  Serious: No
  Sender: FDA-Public Use
  Company Number: None

PATIENT
  Age: 77 Year
  Sex: Male

DRUGS (2)
  1. GEMCITABINE. [Suspect]
     Active Substance: GEMCITABINE
     Dates: start: 201907
  2. DOXCETAXEL [Concomitant]
     Active Substance: DOCETAXEL

REACTIONS (1)
  - Off label use [None]

NARRATIVE: CASE EVENT DATE: 20190716
